FAERS Safety Report 5955473-X (Version None)
Quarter: 2008Q4

REPORT INFORMATION
  Report Type: 
  Country: None (occurrence: None)
  Receive Date: 20081031
  Receipt Date: 20080710
  Transmission Date: 20090506
  Serious: No
  Sender: FDA-Public Use
  Company Number: 2008PV036258

PATIENT
  Age: 81 Year
  Sex: Female
  Weight: 100.7893 kg

DRUGS (4)
  1. SYMLIN [Suspect]
     Indication: TYPE 2 DIABETES MELLITUS
     Dosage: 60 MCG; TID; SC
     Route: 058
     Dates: start: 20080101
  2. TRIMETHOPRIM [Suspect]
     Indication: URINARY TRACT INFECTION
     Dosage: PO
     Route: 048
     Dates: start: 20080620, end: 20080620
  3. NOVOLOG [Concomitant]
  4. LANTUS [Concomitant]

REACTIONS (11)
  - CHEILITIS [None]
  - DRUG HYPERSENSITIVITY [None]
  - EYE SWELLING [None]
  - FEELING ABNORMAL [None]
  - FEELING COLD [None]
  - GENERALISED ERYTHEMA [None]
  - NAUSEA [None]
  - PARAESTHESIA ORAL [None]
  - PYREXIA [None]
  - URINARY TRACT INFECTION [None]
  - VOMITING [None]
